FAERS Safety Report 9637304 (Version 7)
Quarter: 2014Q1

REPORT INFORMATION
  Report Type: Report from Study
  Country: PL (occurrence: PL)
  Receive Date: 20131022
  Receipt Date: 20140327
  Transmission Date: 20141002
  Serious: Yes (Hospitalization, Other)
  Sender: FDA-Public Use
  Company Number: PL-BIOGENIDEC-2013BI097786

PATIENT
  Age: 53 Year
  Sex: Female
  Weight: 68 kg

DRUGS (7)
  1. NATALIZUMAB [Suspect]
     Indication: MULTIPLE SCLEROSIS
     Route: 042
     Dates: start: 20070130, end: 20130812
  2. CIPRONEX [Concomitant]
     Dates: start: 20140108
  3. KETONAL [Concomitant]
     Dates: start: 20131203, end: 20140109
  4. HYDROXYXINE [Concomitant]
     Dates: start: 20131203, end: 20140109
  5. PYRALGINUM [Concomitant]
     Dates: start: 20131213, end: 20140109
  6. KALIPOZ [Concomitant]
     Dates: start: 20131203, end: 20140109
  7. POLPRAZOL [Concomitant]
     Dates: start: 20131203, end: 20140109

REACTIONS (2)
  - Progressive multifocal leukoencephalopathy [Not Recovered/Not Resolved]
  - Immune reconstitution inflammatory syndrome [Not Recovered/Not Resolved]
